FAERS Safety Report 6998148-0 (Version None)
Quarter: 2010Q3

REPORT INFORMATION
  Report Type: 
  Country: None (occurrence: None)
  Receive Date: 20100920
  Receipt Date: 20090721
  Transmission Date: 20110219
  Serious: Yes (Other)
  Sender: FDA-Public Use
  Company Number: US-ASTRAZENECA-2007UW05076

PATIENT

DRUGS (3)
  1. SEROQUEL [Suspect]
     Route: 048
     Dates: start: 20040513
  2. EFFEXOR XR [Concomitant]
     Dates: start: 20040226
  3. GEODON [Concomitant]
     Dates: start: 20040419

REACTIONS (3)
  - DIABETES MELLITUS [None]
  - DIABETIC KETOACIDOSIS [None]
  - PANCREATITIS [None]
